FAERS Safety Report 18456348 (Version 2)
Quarter: 2020Q4

REPORT INFORMATION
  Report Type: Report from Study
  Country: US (occurrence: US)
  Receive Date: 20201103
  Receipt Date: 20201112
  Transmission Date: 20210114
  Serious: Yes (Other)
  Sender: FDA-Public Use
  Company Number: US-PFIZER INC-2020421411

PATIENT
  Age: 20 Year
  Sex: Female

DRUGS (2)
  1. PROMETHAZINE [Concomitant]
     Active Substance: PROMETHAZINE HYDROCHLORIDE
     Dosage: 25 MG (Q2-3H)
     Route: 042
  2. MEPERIDINE HCL [Suspect]
     Active Substance: MEPERIDINE HYDROCHLORIDE
     Dosage: 50-75 MG, Q1-2H, 1G/ 24 HR
     Route: 042

REACTIONS (1)
  - Generalised tonic-clonic seizure [Unknown]
